FAERS Safety Report 4450424-1 (Version None)
Quarter: 2004Q3

REPORT INFORMATION
  Report Type: 
  Country: None (occurrence: None)
  Receive Date: 20040915
  Receipt Date: 20040909
  Transmission Date: 20050211
  Serious: Yes (Hospitalization)
  Sender: FDA-Public Use
  Company Number: 04-09-1280

PATIENT
  Age: 21 Year
  Sex: Female

DRUGS (1)
  1. METFORMIN HCL [Suspect]
     Dosage: 45 G ORAL
     Route: 048

REACTIONS (12)
  - ACIDOSIS [None]
  - ALANINE AMINOTRANSFERASE DECREASED [None]
  - BLOOD PRESSURE DIASTOLIC DECREASED [None]
  - HAEMATOCRIT DECREASED [None]
  - HEART RATE INCREASED [None]
  - HYPOGLYCAEMIA [None]
  - INTENTIONAL OVERDOSE [None]
  - LEUKOCYTOSIS [None]
  - PANCREATITIS ACUTE [None]
  - PLATELET COUNT INCREASED [None]
  - RED BLOOD CELL COUNT INCREASED [None]
  - SUICIDE ATTEMPT [None]
